FAERS Safety Report 8804853 (Version 2)
Quarter: 2012Q4

REPORT INFORMATION
  Report Type: 
  Country: DE (occurrence: DE)
  Receive Date: 20120924
  Receipt Date: 20121012
  Transmission Date: 20130627
  Serious: Yes (Death)
  Sender: FDA-Public Use
  Company Number: DE-TEVA-358704GER

PATIENT
  Age: 89 Year
  Sex: Male

DRUGS (17)
  1. HALOPERIDOL [Suspect]
     Dosage: 5 Milligram Daily;
  2. HALOPERIDOL [Interacting]
     Dosage: 3 Milligram Daily;
  3. HALOPERIDOL [Interacting]
     Dosage: 2.5 Milligram Daily;
  4. RISPERIDONE [Interacting]
     Dosage: 1 Milligram Daily;
  5. RISPERIDONE [Interacting]
  6. MELPERONE [Interacting]
     Dosage: 25-50mg 4x daily as needed; later 250mg daily or 6 x 25mg as needed
  7. MELPERONE [Interacting]
     Dosage: 250mg daily or up to 6 x 25mg as needed
  8. ALFUZOSIN [Interacting]
     Dosage: 10 Milligram Daily;
  9. GALANTAMINE [Interacting]
     Dosage: 16 Milligram Daily;
  10. CAPTOPRIL [Concomitant]
     Dosage: 50 Milligram Daily;
  11. HYDROCHLOROTHIAZIDE [Concomitant]
     Dosage: 25 Milligram Daily;
  12. BISOPROLOL [Concomitant]
     Dosage: 5 Milligram Daily;
  13. ISOSORBIDE DINITRATE [Concomitant]
     Dosage: 120 Milligram Daily;
  14. ASPIRIN [Concomitant]
     Dosage: 100 Milligram Daily;
  15. LORAZEPAM [Concomitant]
     Dosage: up to 2mg daily
  16. OXAZEPAM [Concomitant]
     Indication: CIRCADIAN RHYTHM SLEEP DISORDER
     Dosage: 20 Milligram Daily;
  17. OXAZEPAM [Concomitant]
     Indication: CIRCADIAN RHYTHM SLEEP DISORDER
     Dosage: 15 Milligram Daily;
     Route: 065

REACTIONS (5)
  - Sudden death [Fatal]
  - Confusional state [Unknown]
  - Anxiety [Unknown]
  - Aggression [Unknown]
  - Drug interaction [Unknown]
